FAERS Safety Report 24405315 (Version 2)
Quarter: 2024Q4

REPORT INFORMATION
  Report Type: Report from Study
  Country: FI (occurrence: FI)
  Receive Date: 20241007
  Receipt Date: 20241014
  Transmission Date: 20250114
  Serious: Yes (Hospitalization, Other)
  Sender: MYLAN
  Company Number: FI-MYLANLABS-2024M1089785

PATIENT
  Age: 44 Year
  Sex: Male

DRUGS (11)
  1. CLOZAPINE [Suspect]
     Active Substance: CLOZAPINE
     Indication: Schizophrenia
     Dosage: UNK
     Route: 065
  2. CLOZAPINE [Suspect]
     Active Substance: CLOZAPINE
     Dosage: UNK (DOSE WAS HALVED)
     Route: 065
     Dates: start: 202409, end: 20240929
  3. CLOZAPINE [Suspect]
     Active Substance: CLOZAPINE
     Dosage: UNK
     Route: 065
     Dates: start: 2015, end: 20240930
  4. LYRICA [Suspect]
     Active Substance: PREGABALIN
     Indication: Product used for unknown indication
     Dosage: UNK
     Route: 065
  5. VALPROIC ACID [Concomitant]
     Active Substance: VALPROIC ACID
     Dosage: UNK
     Route: 065
  6. QUETIAPINE FUMARATE [Concomitant]
     Active Substance: QUETIAPINE FUMARATE
     Dosage: UNK
     Route: 065
  7. LERCANIDIPINE [Concomitant]
     Active Substance: LERCANIDIPINE
     Dosage: UNK
     Route: 065
  8. BISOPROLOL [Concomitant]
     Active Substance: BISOPROLOL\BISOPROLOL FUMARATE
     Dosage: UNK
     Route: 065
  9. DIAZEPAM [Concomitant]
     Active Substance: DIAZEPAM
     Dosage: UNK
     Route: 065
  10. CIPRALEX [Concomitant]
     Active Substance: ESCITALOPRAM OXALATE
     Dosage: UNK
     Route: 065
  11. HYDROCHLOROTHIAZIDE\LOSARTAN [Concomitant]
     Active Substance: HYDROCHLOROTHIAZIDE\LOSARTAN
     Dosage: UNK
     Route: 065

REACTIONS (4)
  - Pneumonia [Recovered/Resolved]
  - Neutropenia [Recovered/Resolved]
  - C-reactive protein increased [Unknown]
  - Off label use [Recovered/Resolved]

NARRATIVE: CASE EVENT DATE: 20240901
